FAERS Safety Report 5637085-0 (Version None)
Quarter: 2008Q1

REPORT INFORMATION
  Report Type: 
  Country: None (occurrence: None)
  Receive Date: 20080221
  Receipt Date: 20080213
  Transmission Date: 20080703
  Serious: Yes (Hospitalization)
  Sender: FDA-Public Use
  Company Number: 163-21880-08011381

PATIENT
  Age: 57 Year
  Sex: Female

DRUGS (8)
  1. REVLIMID [Suspect]
     Indication: MULTIPLE MYELOMA
     Dosage: 25MG, DAILY 21D/28D : 15 MG, QD 21D/28D : 25 MG, DAILY 21D/28D
     Dates: start: 20071221, end: 20071227
  2. REVLIMID [Suspect]
     Indication: MULTIPLE MYELOMA
     Dosage: 25MG, DAILY 21D/28D : 15 MG, QD 21D/28D : 25 MG, DAILY 21D/28D
     Dates: start: 20071230, end: 20080110
  3. REVLIMID [Suspect]
     Indication: MULTIPLE MYELOMA
     Dosage: 25MG, DAILY 21D/28D : 15 MG, QD 21D/28D : 25 MG, DAILY 21D/28D
     Dates: start: 20080118
  4. DECADRON [Concomitant]
  5. ASPIRIN [Concomitant]
  6. PERCOCET [Concomitant]
  7. ANTIBIOTICS (ANTIBIOTICS) [Concomitant]
  8. NEUPOGEN [Concomitant]

REACTIONS (5)
  - DISEASE PROGRESSION [None]
  - FATIGUE [None]
  - PANCYTOPENIA [None]
  - PHARYNGOLARYNGEAL PAIN [None]
  - UPPER RESPIRATORY TRACT INFECTION [None]
